FAERS Safety Report 8773717 (Version 2)
Quarter: 2013Q3

REPORT INFORMATION
  Report Type: Spontaneous
  Country: US (occurrence: US)
  Receive Date: 20120907
  Receipt Date: 20130707
  Transmission Date: 20140515
  Serious: Yes (Hospitalization, Other)
  Sender: FDA-Public Use
  Company Number: US-UCBSA-064882

PATIENT
  Sex: Female
  Weight: 57.1 kg

DRUGS (3)
  1. VIMPAT [Suspect]
     Indication: CONVULSION
     Dosage: STRENGTH: 200 MG
     Route: 048
     Dates: start: 20100930
  2. NEURONTIN [Concomitant]
     Dosage: DOSE : 600
     Dates: start: 20071206
  3. ESCITALOPRAM [Concomitant]
     Indication: DEPRESSION
     Dates: start: 20100114

REACTIONS (2)
  - Cardiac disorder [Not Recovered/Not Resolved]
  - Herpes zoster [Not Recovered/Not Resolved]
